FAERS Safety Report 5860902-6 (Version None)
Quarter: 2008Q3

REPORT INFORMATION
  Report Type: 
  Country: None (occurrence: None)
  Receive Date: 20080827
  Receipt Date: 20071226
  Transmission Date: 20090109
  Serious: No
  Sender: FDA-Public Use
  Company Number: US-ABBOTT-07P-163-0431527-00

PATIENT
  Sex: Male
  Weight: 92.5 kg

DRUGS (8)
  1. COATED PDS [Suspect]
     Indication: BLOOD CHOLESTEROL INCREASED
     Route: 048
     Dates: start: 20070915, end: 20071013
  2. COATED PDS [Suspect]
     Dates: start: 20071015, end: 20071115
  3. COATED PDS [Suspect]
     Dates: start: 20071115, end: 20071215
  4. ROSUVASTATIN [Concomitant]
     Indication: BLOOD CHOLESTEROL INCREASED
     Route: 048
  5. ACETYLSALICYLIC ACID SRT [Concomitant]
     Indication: CARDIOVASCULAR EVENT PROPHYLAXIS
     Route: 048
  6. ENALAPRIL MALEATE [Concomitant]
     Indication: HYPERTENSION
     Route: 048
  7. MAXZIDE [Concomitant]
     Indication: HYPERTENSION
     Route: 048
  8. GLIMEPIRIDE [Concomitant]
     Indication: DIABETES MELLITUS
     Route: 048

REACTIONS (2)
  - PRURITUS [None]
  - URTICARIA [None]
